FAERS Safety Report 5453805-2 (Version None)
Quarter: 2007Q3

REPORT INFORMATION
  Report Type: 
  Country: None (occurrence: None)
  Receive Date: 20070917
  Receipt Date: 20070910
  Transmission Date: 20080115
  Serious: Yes (Other)
  Sender: FDA-Public Use
  Company Number: SI-BAYER-200715271GDS

PATIENT
  Age: 91 Year
  Sex: Male
  Weight: 75 kg

DRUGS (1)
  1. AVELOX [Suspect]
     Indication: BRONCHITIS
     Route: 065
     Dates: start: 20041203, end: 20041206

REACTIONS (2)
  - ANORECTAL DISORDER [None]
  - DIARRHOEA HAEMORRHAGIC [None]
